FAERS Safety Report 17329792 (Version 1)
Quarter: 2020Q1

REPORT INFORMATION
  Report Type: Report from Study
  Country: GB (occurrence: GB)
  Receive Date: 20200128
  Receipt Date: 20200128
  Transmission Date: 20200409
  Serious: Yes (Death)
  Sender: FDA-Public Use
  Company Number: GB-JNJFOC-20190407044

PATIENT
  Sex: Male
  Weight: 53.6 kg

DRUGS (7)
  1. STELARA [Suspect]
     Active Substance: USTEKINUMAB
     Indication: PSORIASIS
     Route: 058
     Dates: start: 20150901
  2. EXOREX [Concomitant]
     Active Substance: COAL TAR
     Route: 065
     Dates: start: 20170628
  3. DAKTACORT [Concomitant]
     Active Substance: HYDROCORTISONE\MICONAZOLE NITRATE
     Route: 065
     Dates: start: 20180405
  4. ZERODERM [Concomitant]
     Route: 065
     Dates: start: 20180405
  5. BETNOVATE [Concomitant]
     Active Substance: BETAMETHASONE
     Route: 065
     Dates: start: 20150312
  6. BETAMETHASONE. [Concomitant]
     Active Substance: BETAMETHASONE
     Route: 065
     Dates: start: 20140120
  7. AVEENO [Concomitant]
     Active Substance: DIMETHICONE\HOMOSALATE\OCTINOXATE\OCTISALATE\TITANIUM DIOXIDE
     Route: 065
     Dates: start: 20120101

REACTIONS (1)
  - Liver disorder [Fatal]

NARRATIVE: CASE EVENT DATE: 201903
